FAERS Safety Report 21102511 (Version 1)
Quarter: 2022Q3

REPORT INFORMATION
  Report Type: Report from Study
  Country: US (occurrence: US)
  Receive Date: 20220719
  Receipt Date: 20220719
  Transmission Date: 20221026
  Serious: Yes (Disabling, Other)
  Sender: FDA-Public Use
  Company Number: US-GILEAD-2022-0590196

PATIENT
  Age: 57 Year
  Sex: Female

DRUGS (1)
  1. COBICISTAT\ELVITEGRAVIR\EMTRICITABINE\TENOFOVIR [Suspect]
     Active Substance: COBICISTAT\ELVITEGRAVIR\EMTRICITABINE\TENOFOVIR
     Indication: HIV infection
     Dosage: 510 MG, QD
     Route: 048

REACTIONS (2)
  - Blindness [Not Recovered/Not Resolved]
  - Neoplasm [Not Recovered/Not Resolved]
